FAERS Safety Report 6143314-X (Version None)
Quarter: 2009Q2

REPORT INFORMATION
  Report Type: 
  Country: None (occurrence: None)
  Receive Date: 20090403
  Receipt Date: 20090330
  Transmission Date: 20091009
  Serious: Yes (Hospitalization)
  Sender: FDA-Public Use
  Company Number: B0547790A

PATIENT
  Sex: Male

DRUGS (6)
  1. HEPSERA [Suspect]
     Indication: HEPATITIS B
     Dosage: 10MG PER DAY
     Route: 065
     Dates: start: 20061001
  2. LAMIVUDINE [Concomitant]
     Indication: HEPATITIS B
     Dosage: 100MG PER DAY
     Route: 065
  3. MYCOPHENOLATE MOFETIL [Concomitant]
     Route: 065
  4. FELODIPINE [Concomitant]
     Route: 065
  5. FUROSEMIDE [Concomitant]
     Route: 065
  6. STEROIDS [Concomitant]
     Route: 065

REACTIONS (19)
  - AMINOACIDURIA [None]
  - BLOOD CREATININE INCREASED [None]
  - BONE PAIN [None]
  - DRUG INEFFECTIVE [None]
  - DRUG TOXICITY [None]
  - FANCONI SYNDROME [None]
  - FATIGUE [None]
  - HAEMATURIA [None]
  - HYPOKALAEMIA [None]
  - HYPOPHOSPHATAEMIA [None]
  - HYPOURICAEMIA [None]
  - LIVER FUNCTION TEST ABNORMAL [None]
  - METABOLIC ACIDOSIS [None]
  - OSTEOPOROSIS [None]
  - PROTEINURIA [None]
  - RENAL FAILURE ACUTE [None]
  - RENAL FAILURE CHRONIC [None]
  - RENAL TUBULAR NECROSIS [None]
  - WEIGHT DECREASED [None]
